FAERS Safety Report 17980946 (Version 3)
Quarter: 2020Q3

REPORT INFORMATION
  Report Type: Report from Study
  Country: FR (occurrence: FR)
  Receive Date: 20200704
  Receipt Date: 20200721
  Transmission Date: 20201103
  Serious: Yes (Disabling)
  Sender: FDA-Public Use
  Company Number: FR-AMGEN-FRACT2020105097

PATIENT
  Age: 58 Year
  Sex: Male
  Weight: 70.6 kg

DRUGS (8)
  1. MACROGOL [Concomitant]
     Active Substance: POLYETHYLENE GLYCOLS
     Indication: CONSTIPATION
     Dosage: UNK (2 LI)
     Route: 048
     Dates: start: 202001
  2. FLUOROURACIL. [Suspect]
     Active Substance: FLUOROURACIL
     Indication: COLORECTAL CANCER
     Dosage: 5050 MILLIGRAM
     Route: 042
     Dates: start: 20200306, end: 20200614
  3. LACTULOSE. [Concomitant]
     Active Substance: LACTULOSE
     Indication: CONSTIPATION
     Dosage: UNK UNK, AS NECESSARY
     Route: 048
     Dates: start: 202006, end: 20200625
  4. IXPRIM [Concomitant]
     Active Substance: ACETAMINOPHEN\TRAMADOL HYDROCHLORIDE
     Indication: TUMOUR PAIN
     Dosage: UNK UNK, AS NECESSARY
     Route: 048
     Dates: start: 20200303
  5. PANITUMUMAB [Suspect]
     Active Substance: PANITUMUMAB
     Indication: COLORECTAL CANCER
     Dosage: 340 MILLIGRAM
     Route: 042
     Dates: start: 20200306, end: 20200612
  6. OXALIPLATINE [Suspect]
     Active Substance: OXALIPLATIN
     Indication: COLORECTAL CANCER
     Dosage: 155 MILLIGRAM
     Route: 042
     Dates: start: 20200306, end: 20200612
  7. DOXYCYCLINE. [Concomitant]
     Active Substance: DOXYCYCLINE
     Indication: FOLLICULITIS
     Dosage: 100 MILLIGRAM, (IJ)
     Route: 048
     Dates: start: 20200315
  8. LEVOFOLINATE DE CALCIUM [Suspect]
     Active Substance: LEVOLEUCOVORIN CALCIUM
     Indication: COLORECTAL CANCER
     Dosage: 360 MILLIGRAM
     Route: 042
     Dates: start: 20200306, end: 20200612

REACTIONS (1)
  - Muscle disorder [Recovering/Resolving]

NARRATIVE: CASE EVENT DATE: 20200525
